FAERS Safety Report 9775933 (Version 1)
Quarter: 2013Q4

REPORT INFORMATION
  Report Type: Spontaneous
  Country: PL (occurrence: PL)
  Receive Date: 20131220
  Receipt Date: 20131220
  Transmission Date: 20140711
  Serious: Yes (Other)
  Sender: FDA-Public Use
  Company Number: PL-BAXTER-2013BAX050418

PATIENT
  Age: 48 Year
  Sex: Female

DRUGS (4)
  1. ADVATE 250 IU POWDER AND SOLVENT FOR SOLUTION FOR INJECTION [Suspect]
     Indication: FACTOR VIII INHIBITION
     Route: 065
     Dates: start: 20111206
  2. ENDOXAN [Suspect]
     Indication: IMMUNE TOLERANCE INDUCTION
     Route: 042
     Dates: start: 20111206
  3. NOVOSEVEN [Suspect]
     Indication: FACTOR VIII INHIBITION
     Route: 065
  4. METHYLPREDNISOLONE [Suspect]
     Indication: PRODUCT USED FOR UNKNOWN INDICATION
     Route: 065
     Dates: start: 20111206

REACTIONS (1)
  - Haematuria [Unknown]
